FAERS Safety Report 25211287 (Version 1)
Quarter: 2025Q2

REPORT INFORMATION
  Report Type: Spontaneous
  Country: PL (occurrence: PL)
  Receive Date: 20250417
  Receipt Date: 20250417
  Transmission Date: 20250717
  Serious: Yes (Life-Threatening)
  Sender: BAUSCH AND LOMB
  Company Number: None

PATIENT
  Age: 52 Year
  Sex: Female
  Weight: 75 kg

DRUGS (3)
  1. METFORMIN [Suspect]
     Active Substance: METFORMIN HYDROCHLORIDE
     Indication: Product used for unknown indication
     Route: 065
  2. AMLODIPINE [Suspect]
     Active Substance: AMLODIPINE BESYLATE
     Indication: Product used for unknown indication
     Route: 065
  3. RISPERIDONE [Suspect]
     Active Substance: RISPERIDONE
     Indication: Product used for unknown indication
     Route: 065

REACTIONS (6)
  - Suicide attempt [Unknown]
  - Confusional state [Recovering/Resolving]
  - Shock [Recovering/Resolving]
  - Extrasystoles [Recovering/Resolving]
  - Muscle spasms [Recovering/Resolving]
  - Dystonia [Recovering/Resolving]
